FAERS Safety Report 4432755-4 (Version None)
Quarter: 2004Q3

REPORT INFORMATION
  Report Type: 
  Country: None (occurrence: None)
  Receive Date: 20040820
  Receipt Date: 20040806
  Transmission Date: 20050211
  Serious: Yes (Other)
  Sender: FDA-Public Use
  Company Number: 2004054942

PATIENT
  Sex: Female
  Weight: 46 kg

DRUGS (4)
  1. ATORVASTATIN CALCIUM [Suspect]
     Indication: HYPERCHOLESTEROLAEMIA
     Dosage: 40 MG (40 MG, 1 IN 1 D),
     Dates: start: 20010301
  2. CARBAMAZEPINE [Suspect]
     Indication: PARTIAL SEIZURES
     Dosage: 1200 MG (1200 MG, 1 IN 1 D),
  3. ROXITHROMYCIN (ROXITHROMYCIN) [Suspect]
     Indication: BRONCHITIS
     Dosage: 300 MG (150 MG, 2 IN 1 D),
     Dates: start: 20010408, end: 20010401
  4. GABAPENTIN [Concomitant]

REACTIONS (7)
  - BRONCHITIS [None]
  - DIPLOPIA [None]
  - DRUG INTERACTION [None]
  - FATIGUE [None]
  - FEELING DRUNK [None]
  - HYPERCHOLESTEROLAEMIA [None]
  - SELF-MEDICATION [None]
